FAERS Safety Report 8834376 (Version 1)
Quarter: 2012Q4

REPORT INFORMATION
  Report Type: 
  Country: FR (occurrence: FR)
  Receive Date: 20121010
  Receipt Date: 20121010
  Transmission Date: 20130627
  Serious: Yes (Other)
  Sender: FDA-Public Use
  Company Number: FR-US-EMD SERONO, INC.-7164586

PATIENT
  Age: 27 Year
  Sex: Female

DRUGS (1)
  1. OVITRELLE [Suspect]
     Indication: PRODUCT USED FOR UNKNOWN INDICATION
     Route: 058
     Dates: start: 201208

REACTIONS (5)
  - Ascites [Unknown]
  - Hepatic neoplasm [Unknown]
  - Pruritus generalised [Unknown]
  - Incorrect dose administered [Unknown]
  - Off label use [Unknown]
